FAERS Safety Report 4373440-7 (Version None)
Quarter: 2004Q2

REPORT INFORMATION
  Report Type: 
  Country: None (occurrence: None)
  Receive Date: 20040608
  Receipt Date: 20040601
  Transmission Date: 20050107
  Serious: Yes (Hospitalization)
  Sender: FDA-Public Use
  Company Number: US-MERCK-0406USA00111

PATIENT
  Age: 76 Year
  Sex: Female

DRUGS (2)
  1. COSOPT [Suspect]
     Indication: GLAUCOMA
     Route: 047
     Dates: start: 20040423, end: 20040401
  2. XALATAN [Concomitant]
     Route: 065

REACTIONS (2)
  - APRAXIA [None]
  - BLOOD GLUCOSE INCREASED [None]
